FAERS Safety Report 5320312-7 (Version None)
Quarter: 2007Q2

REPORT INFORMATION
  Report Type: 
  Country: None (occurrence: None)
  Receive Date: 20070215
  Receipt Date: 20060809
  Transmission Date: 20071010
  Serious: Yes (Other)
  Sender: FDA-Public Use
  Company Number: MC200600545

PATIENT
  Sex: Male

DRUGS (3)
  1. ANGIOMAX [Suspect]
     Indication: PERIPHERAL VASCULAR DISORDER
     Dosage: SEE IMAGE
     Route: 040
     Dates: start: 20060809, end: 20060809
  2. ANGIOMAX [Suspect]
     Indication: PERIPHERAL VASCULAR DISORDER
     Dosage: SEE IMAGE
     Route: 040
     Dates: start: 20060809, end: 20060809
  3. ANGIOMAX [Suspect]
     Indication: PERIPHERAL VASCULAR DISORDER
     Dosage: SEE IMAGE
     Route: 040
     Dates: start: 20060809, end: 20060809

REACTIONS (1)
  - ARTERIAL THROMBOSIS [None]
